FAERS Safety Report 17060233 (Version 1)
Quarter: 2019Q4

REPORT INFORMATION
  Report Type: Spontaneous
  Country: US (occurrence: US)
  Receive Date: 20191121
  Receipt Date: 20191121
  Transmission Date: 20200122
  Serious: No
  Sender: FDA-Public Use
  Company Number: US-BAYER-2019-210445

PATIENT
  Age: 73 Year
  Sex: Female

DRUGS (1)
  1. CLIMARA [Suspect]
     Active Substance: ESTRADIOL
     Dosage: UNK
     Route: 062
     Dates: start: 1999

REACTIONS (5)
  - Headache [None]
  - Hot flush [None]
  - Rash [None]
  - Feeling abnormal [None]
  - Palpitations [None]

NARRATIVE: CASE EVENT DATE: 20191105
